FAERS Safety Report 18166365 (Version 1)
Quarter: 2020Q3

REPORT INFORMATION
  Report Type: Spontaneous
  Country: FI (occurrence: FI)
  Receive Date: 20200819
  Receipt Date: 20200819
  Transmission Date: 20201103
  Serious: Yes (Hospitalization)
  Sender: FDA-Public Use
  Company Number: FI-ACCORD-195843

PATIENT
  Age: 55 Year
  Sex: Male

DRUGS (2)
  1. ATROPINE. [Suspect]
     Active Substance: ATROPINE
     Indication: PROPHYLAXIS
     Dosage: 0.25,MG,TOTAL
     Route: 058
     Dates: start: 20200729, end: 20200729
  2. IRINOTECAN ACCORD [Suspect]
     Active Substance: IRINOTECAN
     Indication: GASTROINTESTINAL CANCER METASTATIC
     Route: 042
     Dates: start: 20200729, end: 20200729

REACTIONS (6)
  - Suspected product quality issue [Unknown]
  - Product preparation issue [Unknown]
  - Speech disorder [Recovered/Resolved]
  - Off label use [Unknown]
  - Product storage error [Unknown]
  - Therapeutic product effect decreased [Unknown]

NARRATIVE: CASE EVENT DATE: 20200729
